FAERS Safety Report 10290594 (Version 1)
Quarter: 2014Q3

REPORT INFORMATION
  Report Type: Spontaneous
  Country: GB (occurrence: None)
  Receive Date: 20140708
  Receipt Date: 20140708
  Transmission Date: 20150326
  Serious: Yes (Other)
  Sender: FDA-Public Use
  Company Number: GB-DEXPHARM-20140380

PATIENT
  Age: 52 Year
  Sex: Female

DRUGS (1)
  1. OMEPRAZOLE. [Suspect]
     Active Substance: OMEPRAZOLE
     Indication: PROPHYLAXIS
     Dosage: 10 MG MILGRAM(S) SEP. DOSAGES/INTERVAL 1 IN 1 DAYS
     Dates: start: 20140214

REACTIONS (3)
  - Medication residue present [None]
  - Proctalgia [None]
  - Abdominal pain upper [None]

NARRATIVE: CASE EVENT DATE: 201402
